FAERS Safety Report 13942847 (Version 1)
Quarter: 2017Q3

REPORT INFORMATION
  Report Type: Spontaneous
  Country: DE (occurrence: DE)
  Receive Date: 20170907
  Receipt Date: 20170907
  Transmission Date: 20171127
  Serious: Yes (Congenital Anomaly)
  Sender: FDA-Public Use
  Company Number: DE-ALLERGAN-1749702US

PATIENT
  Sex: Male
  Weight: 3.3 kg

DRUGS (3)
  1. FAMENITA [Concomitant]
     Active Substance: PROGESTERONE
     Indication: SHORTENED CERVIX
     Dosage: 200 MG, QD
     Route: 064
  2. CITALOPRAM HYDROBROMIDE - BP [Suspect]
     Active Substance: CITALOPRAM HYDROBROMIDE
     Indication: DEPRESSION
     Dosage: 20 MG, QD
     Route: 064
     Dates: start: 20160718, end: 20170424
  3. FEMIBION [Concomitant]
     Active Substance: VITAMINS
     Indication: PROPHYLAXIS OF NEURAL TUBE DEFECT
     Dosage: 0.8 MG, UNK
     Route: 064

REACTIONS (2)
  - Ventricular septal defect [Recovering/Resolving]
  - Foetal exposure during pregnancy [Unknown]

NARRATIVE: CASE EVENT DATE: 20160718
